FAERS Safety Report 17960047 (Version 7)
Quarter: 2024Q2

REPORT INFORMATION
  Report Type: Spontaneous
  Country: LT (occurrence: LT)
  Receive Date: 20200630
  Receipt Date: 20240607
  Transmission Date: 20240715
  Serious: Yes (Hospitalization, Other)
  Sender: FDA-Public Use
  Company Number: LT-CELLTRION INC.-2020LT023696

PATIENT

DRUGS (19)
  1. INFLIXIMAB [Suspect]
     Active Substance: INFLIXIMAB
     Indication: Rheumatoid arthritis
     Dosage: TWO COURSES, LAST DOSE WAS INJECTED ONE WEEK EARLIER (ON THE 24TH OF JULY 2019)
  2. INFLIXIMAB [Suspect]
     Active Substance: INFLIXIMAB
     Dosage: 3 MG/KG, TWO COURSES
     Route: 065
     Dates: start: 20200619, end: 20200624
  3. INFLIXIMAB [Suspect]
     Active Substance: INFLIXIMAB
     Dosage: UNK
     Route: 065
  4. INFLIXIMAB [Suspect]
     Active Substance: INFLIXIMAB
     Dosage: 3 MG/KG
     Dates: start: 20190611, end: 20190724
  5. INFLIXIMAB [Suspect]
     Active Substance: INFLIXIMAB
     Dosage: 3 MG/KG
     Dates: start: 20200619, end: 20200624
  6. PLAQUENIL [Suspect]
     Active Substance: HYDROXYCHLOROQUINE SULFATE
     Indication: Rheumatoid arthritis
     Dosage: 200 MG, BID
     Route: 065
  7. LORNOXICAM [Suspect]
     Active Substance: LORNOXICAM
     Indication: Rheumatoid arthritis
     Dosage: 8 MG, EVERY 12 HOURS
     Route: 065
  8. LORNOXICAM [Suspect]
     Active Substance: LORNOXICAM
     Dosage: 8 MG, BID
     Route: 065
  9. METHOTREXATE [Suspect]
     Active Substance: METHOTREXATE
     Indication: Rheumatoid arthritis
     Dosage: 1/WEEK (DOSE WAS INCREASED TO 15 MG PER WEEK)
     Route: 065
  10. METHOTREXATE [Suspect]
     Active Substance: METHOTREXATE
     Dosage: 15 MG, QW, DOSE WAS INCREASED TO 15 MG PER WEEK
     Route: 065
  11. METHYLPREDNISOLONE [Suspect]
     Active Substance: METHYLPREDNISOLONE
     Indication: Rheumatoid arthritis
     Dosage: DECREASED DOSE
     Route: 065
  12. METHYLPREDNISOLONE [Suspect]
     Active Substance: METHYLPREDNISOLONE
     Dosage: 12 MG, QD
     Route: 065
  13. METHYLPREDNISOLONE [Suspect]
     Active Substance: METHYLPREDNISOLONE
     Dosage: GLUCOCORTICOIDS TREATMENT WAS RENEWED
  14. FOLIC ACID [Suspect]
     Active Substance: FOLIC ACID
     Indication: Rheumatoid arthritis
     Dosage: UNK
  15. ACETAMINOPHEN [Concomitant]
     Active Substance: ACETAMINOPHEN
     Indication: Product used for unknown indication
     Route: 065
  16. MANNITOL [Concomitant]
     Active Substance: MANNITOL
     Indication: Product used for unknown indication
     Route: 065
  17. CEFTAZIDIME [Concomitant]
     Active Substance: CEFTAZIDIME
     Indication: Immunosuppressant drug therapy
     Route: 042
  18. TRANDOLAPRIL AND VERAPAMIL HYDROCHLORIDE [Concomitant]
     Active Substance: TRANDOLAPRIL\VERAPAMIL HYDROCHLORIDE
     Indication: Hypertension
     Dosage: VERAPAMIL/TRANDOLAPRIL 240 MG/4 MG, QD
  19. FOLIC ACID [Concomitant]
     Active Substance: FOLIC ACID
     Indication: Rheumatoid arthritis
     Dosage: UNK
     Route: 065

REACTIONS (35)
  - Neurological symptom [Unknown]
  - Osteoporosis [Unknown]
  - Aphasia [Recovering/Resolving]
  - Blepharospasm [Recovering/Resolving]
  - Dysarthria [Recovering/Resolving]
  - Disorientation [Recovering/Resolving]
  - Movement disorder [Recovering/Resolving]
  - Rheumatoid arthritis [Unknown]
  - Brain oedema [Recovering/Resolving]
  - Rebound effect [Unknown]
  - Ataxia [Recovering/Resolving]
  - Bradyphrenia [Recovering/Resolving]
  - Drug intolerance [Unknown]
  - Drug-induced liver injury [Unknown]
  - Pancytopenia [Recovering/Resolving]
  - Leukopenia [Recovered/Resolved]
  - Anaemia [Unknown]
  - Transaminases increased [Unknown]
  - Thrombocytopenia [Recovering/Resolving]
  - Asthenia [Recovering/Resolving]
  - Balance disorder [Recovering/Resolving]
  - Somnolence [Recovering/Resolving]
  - Coordination abnormal [Recovering/Resolving]
  - Normochromic normocytic anaemia [Recovering/Resolving]
  - Tick-borne viral encephalitis [Recovering/Resolving]
  - Vomiting [Recovering/Resolving]
  - Chills [Recovering/Resolving]
  - Pyrexia [Recovering/Resolving]
  - Headache [Recovering/Resolving]
  - Nausea [Recovering/Resolving]
  - Dizziness [Recovering/Resolving]
  - Drug ineffective [Unknown]
  - Nausea [Unknown]
  - Vomiting [Unknown]
  - Dizziness [Unknown]

NARRATIVE: CASE EVENT DATE: 20190624
